FAERS Safety Report 8801894 (Version 1)
Quarter: 2012Q4

REPORT INFORMATION
  Report Type: 
  Country: US (occurrence: US)
  Receive Date: 20120921
  Receipt Date: 20120921
  Transmission Date: 20130627
  Serious: No
  Sender: FDA-Public Use
  Company Number: US-PFIZER INC-2012233407

PATIENT
  Age: 56 Year

DRUGS (5)
  1. OXYCODONE HYDROCHLORIDE [Suspect]
     Dosage: UNK
  2. CELECOXIB [Suspect]
     Dosage: UNK
  3. NIFEDIPINE [Suspect]
     Dosage: UNK
  4. ACETAMINOPHEN [Suspect]
     Dosage: UNK
  5. INDOMETHACIN [Suspect]
     Dosage: UNK

REACTIONS (1)
  - Drug hypersensitivity [Unknown]
